FAERS Safety Report 24567171 (Version 2)
Quarter: 2024Q4

REPORT INFORMATION
  Report Type: Spontaneous
  Country: IT (occurrence: IT)
  Receive Date: 20241030
  Receipt Date: 20241127
  Transmission Date: 20250115
  Serious: Yes (Death, Other)
  Sender: NOVARTIS
  Company Number: IT-002147023-NVSC2024IT210556

PATIENT
  Age: 18 Year
  Sex: Male
  Weight: 150 kg

DRUGS (2)
  1. KYMRIAH [Suspect]
     Active Substance: TISAGENLECLEUCEL
     Indication: Acute lymphocytic leukaemia
     Dosage: UNK, ONCE/SINGLE
     Route: 042
     Dates: start: 20231108, end: 20231108
  2. CASPOFUNGIN [Concomitant]
     Active Substance: CASPOFUNGIN
     Indication: Fungal infection
     Dosage: UNK
     Route: 065

REACTIONS (6)
  - Cardiac arrest [Fatal]
  - Cardio-respiratory arrest [Fatal]
  - Pneumonia [Fatal]
  - Aspergillus infection [Fatal]
  - Cytokine release syndrome [Recovered/Resolved]
  - Immune effector cell-associated neurotoxicity syndrome [Recovered/Resolved]

NARRATIVE: CASE EVENT DATE: 20231122
